FAERS Safety Report 5838187-6 (Version None)
Quarter: 2008Q3

REPORT INFORMATION
  Report Type: 
  Country: None (occurrence: None)
  Receive Date: 20080808
  Receipt Date: 20080728
  Transmission Date: 20090109
  Serious: Yes (Other)
  Sender: FDA-Public Use
  Company Number: CA-BAYER-200829362NA

PATIENT
  Age: 27 Year
  Sex: Male

DRUGS (1)
  1. KOGENATE FS [Suspect]
     Indication: DRUG USE FOR UNKNOWN INDICATION
     Route: 042

REACTIONS (1)
  - FACTOR VIII INHIBITION [None]
